FAERS Safety Report 6454565-9 (Version None)
Quarter: 2009Q4

REPORT INFORMATION
  Report Type: 
  Country: None (occurrence: None)
  Receive Date: 20091118
  Receipt Date: 20091106
  Transmission Date: 20100525
  Serious: Yes (Hospitalization, Other)
  Sender: FDA-Public Use
  Company Number: 2009SP035400

PATIENT
  Age: 15 Year
  Sex: Male

DRUGS (1)
  1. AFRIN [Suspect]
     Indication: PHARYNGEAL HAEMORRHAGE
     Dosage: TID; PO
     Route: 048

REACTIONS (6)
  - AMNESIA [None]
  - APNOEA [None]
  - BRADYCARDIA [None]
  - MENTAL STATUS CHANGES [None]
  - RESPIRATORY DEPRESSION [None]
  - VOMITING [None]
